FAERS Safety Report 6852575-0 (Version None)
Quarter: 2010Q3

REPORT INFORMATION
  Report Type: 
  Country: None (occurrence: None)
  Receive Date: 20100717
  Receipt Date: 20071119
  Transmission Date: 20110219
  Serious: No
  Sender: FDA-Public Use
  Company Number: US-PFIZER INC-2007099194

PATIENT
  Sex: Female
  Weight: 62.7 kg

DRUGS (5)
  1. CHANTIX [Suspect]
     Indication: SMOKING CESSATION THERAPY
     Dates: start: 20071101
  2. FENTANYL [Concomitant]
  3. OXYCODONE HCL AND ACETAMINOPHEN [Concomitant]
     Indication: NEURALGIA
  4. LYRICA [Concomitant]
     Indication: NEURALGIA
  5. ZESTORETIC [Concomitant]
     Indication: BLOOD PRESSURE ABNORMAL

REACTIONS (4)
  - DYSGEUSIA [None]
  - FLATULENCE [None]
  - NAUSEA [None]
  - SKIN ODOUR ABNORMAL [None]
